FAERS Safety Report 4763634-0 (Version None)
Quarter: 2005Q3

REPORT INFORMATION
  Report Type: 
  Country: None (occurrence: None)
  Receive Date: 20050901
  Receipt Date: 20050712
  Transmission Date: 20060218
  Serious: Yes (Other)
  Sender: FDA-Public Use
  Company Number: EGEL00205002302

PATIENT
  Sex: Female

DRUGS (1)
  1. ESTROGEL [Suspect]
     Indication: MENOPAUSAL SYMPTOMS
     Dosage: 1 DOSAGE FORM QD TRANSCUTANEOUS
     Route: 003

REACTIONS (3)
  - CEREBROVASCULAR ACCIDENT [None]
  - HAIR GROWTH ABNORMAL [None]
  - PRURITUS [None]
